FAERS Safety Report 21042182 (Version 1)
Quarter: 2022Q3

REPORT INFORMATION
  Report Type: Spontaneous
  Country: TR (occurrence: TR)
  Receive Date: 20220705
  Receipt Date: 20220705
  Transmission Date: 20221026
  Serious: Yes (Hospitalization, Other)
  Sender: FDA-Public Use
  Company Number: TR-SCIEGENP-2022SCLIT00489

PATIENT
  Age: 17 Year
  Sex: Female

DRUGS (2)
  1. PREGABALIN [Suspect]
     Active Substance: PREGABALIN
     Indication: Insomnia
     Dosage: 900-1500 MG/DAY FOR TWO YEARS
     Route: 065
  2. PREGABALIN [Suspect]
     Active Substance: PREGABALIN
     Indication: Withdrawal syndrome

REACTIONS (5)
  - Drug abuse [Unknown]
  - Decreased appetite [Unknown]
  - Hyperhidrosis [Unknown]
  - Irritability [Unknown]
  - Insomnia [Unknown]
